FAERS Safety Report 6091202-X (Version None)
Quarter: 2009Q1

REPORT INFORMATION
  Report Type: 
  Country: None (occurrence: None)
  Receive Date: 20090225
  Receipt Date: 20090217
  Transmission Date: 20090719
  Serious: Yes (Hospitalization)
  Sender: FDA-Public Use
  Company Number: FR-BAYER-200913911GPV

PATIENT
  Age: 46 Year
  Sex: Male

DRUGS (18)
  1. CIFLOX [Suspect]
     Indication: DRUG USE FOR UNKNOWN INDICATION
     Route: 048
     Dates: start: 20081013, end: 20081001
  2. KETOPROFENE [Suspect]
     Indication: DRUG USE FOR UNKNOWN INDICATION
     Route: 048
     Dates: start: 20081013, end: 20081001
  3. COLCHIMAX [Suspect]
     Indication: DRUG USE FOR UNKNOWN INDICATION
     Route: 048
     Dates: start: 20081014, end: 20081001
  4. FOZITEC 10 MG [Suspect]
     Indication: DRUG USE FOR UNKNOWN INDICATION
     Dosage: UNIT DOSE: 5 MG
     Route: 048
     Dates: start: 20070308, end: 20081024
  5. SANDIMMUNE [Suspect]
     Indication: DRUG USE FOR UNKNOWN INDICATION
     Route: 048
     Dates: start: 19990101, end: 20081024
  6. GLUCOPHAGE [Concomitant]
     Indication: DRUG USE FOR UNKNOWN INDICATION
     Route: 065
  7. NOVONORM [Concomitant]
     Indication: DRUG USE FOR UNKNOWN INDICATION
     Route: 065
  8. AZANTAC [Concomitant]
     Indication: DRUG USE FOR UNKNOWN INDICATION
     Route: 065
  9. CORTANCYL [Concomitant]
     Indication: DRUG USE FOR UNKNOWN INDICATION
     Route: 065
  10. DEPAKENE [Concomitant]
     Indication: DRUG USE FOR UNKNOWN INDICATION
     Route: 065
  11. TRILEPTAL [Concomitant]
     Indication: DRUG USE FOR UNKNOWN INDICATION
     Route: 065
  12. TAHOR [Concomitant]
     Indication: DRUG USE FOR UNKNOWN INDICATION
     Route: 065
  13. IMUREL [Concomitant]
     Indication: DRUG USE FOR UNKNOWN INDICATION
     Route: 065
  14. CLAMOXYL [Concomitant]
     Indication: URINARY TRACT INFECTION BACTERIAL
     Route: 065
     Dates: start: 20081007
  15. TANGANIL [Concomitant]
     Indication: HYPERTHERMIA
     Route: 065
     Dates: start: 20081009
  16. VOGALENE [Concomitant]
     Indication: HYPERTHERMIA
     Route: 065
     Dates: start: 20081009
  17. DEXTROPROPOXYPHENE [Concomitant]
     Indication: PAIN IN EXTREMITY
     Route: 065
     Dates: start: 20081014
  18. PARACETAMOL [Concomitant]
     Indication: PAIN IN EXTREMITY
     Route: 065
     Dates: start: 20081014

REACTIONS (2)
  - HYPERKALAEMIA [None]
  - RENAL FAILURE [None]
